FAERS Safety Report 7883350-6 (Version None)
Quarter: 2011Q4

REPORT INFORMATION
  Report Type: 
  Country: None (occurrence: None)
  Receive Date: 20111102
  Receipt Date: 20111102
  Transmission Date: 20120403
  Serious: Yes (Other)
  Sender: FDA-Public Use
  Company Number: None

PATIENT
  Age: 14 Year
  Sex: Male
  Weight: 108.86 kg

DRUGS (1)
  1. LAMICTAL [Suspect]
     Indication: IMPULSE-CONTROL DISORDER
     Dosage: 50MG
     Route: 048
     Dates: start: 20111001, end: 20111030

REACTIONS (4)
  - LEGAL PROBLEM [None]
  - AGGRESSION [None]
  - SUICIDAL IDEATION [None]
  - ANGER [None]
